FAERS Safety Report 16084757 (Version 3)
Quarter: 2019Q2

REPORT INFORMATION
  Report Type: Spontaneous
  Country: JP (occurrence: JP)
  Receive Date: 20190318
  Receipt Date: 20190404
  Transmission Date: 20190711
  Serious: Yes (Hospitalization, Other)
  Sender: FDA-Public Use
  Company Number: JP-009507513-1903JPN001352J

PATIENT
  Age: 49 Year
  Sex: Female

DRUGS (3)
  1. REFLEX [Suspect]
     Active Substance: MIRTAZAPINE
     Dosage: UNK
     Route: 048
  2. BORIC ACID [Suspect]
     Active Substance: BORIC ACID
     Dosage: UNK
     Route: 048
  3. SENNOSIDE [Concomitant]
     Active Substance: SENNOSIDES
     Dosage: UNK
     Route: 065

REACTIONS (5)
  - Acute kidney injury [Unknown]
  - Altered state of consciousness [Unknown]
  - Pulseless electrical activity [Unknown]
  - Intentional overdose [Unknown]
  - Arrhythmia [Unknown]
